FAERS Safety Report 17110322 (Version 6)
Quarter: 2021Q4

REPORT INFORMATION
  Report Type: Report from Study
  Country: JP (occurrence: JP)
  Receive Date: 20191204
  Receipt Date: 20211210
  Transmission Date: 20220303
  Serious: Yes (Death, Hospitalization)
  Sender: FDA-Public Use
  Company Number: JP-CHUGAI-C2019026133ROCHE

PATIENT
  Age: 41 Year
  Sex: Male
  Weight: 54 kg

DRUGS (9)
  1. ATEZOLIZUMAB [Suspect]
     Active Substance: ATEZOLIZUMAB
     Indication: Non-small cell lung cancer
     Dosage: RECENT DOSE ON 15/JAN/2020
     Route: 041
     Dates: start: 20191108
  2. BEVACIZUMAB [Suspect]
     Active Substance: BEVACIZUMAB
     Indication: Non-small cell lung cancer
     Dosage: 15 MG/KG?RECENT DOSE ON 15/JAN/2020
     Route: 041
     Dates: start: 20191108, end: 20200115
  3. OXYCODONE HYDROCHLORIDE [Concomitant]
     Active Substance: OXYCODONE HYDROCHLORIDE
     Indication: Cancer pain
     Dosage: BEGINNING OF DOSAGE DAY: INVESTIGATIONAL AGENT BEFORE ADMINISTRATION
     Route: 048
  4. SENNOSIDES [Concomitant]
     Active Substance: SENNOSIDES
     Indication: Constipation prophylaxis
     Dosage: UNCERTAIN DOSAGE AND SINGLE USE
     Route: 048
  5. PROCHLORPERAZINE MALEATE [Concomitant]
     Active Substance: PROCHLORPERAZINE MALEATE
     Indication: Prophylaxis of nausea and vomiting
     Dosage: BEGINNING OF DOSAGE DAY: INVESTIGATIONAL AGENT BEFORE ADMINISTRATION
     Route: 048
  6. REBAMIPIDE [Concomitant]
     Active Substance: REBAMIPIDE
     Indication: Gastritis prophylaxis
     Dosage: BEGINNING OF DOSAGE DAY: INVESTIGATIONAL AGENT BEFORE ADMINISTRATION
     Route: 048
  7. MAGNESIUM OXIDE [Concomitant]
     Active Substance: MAGNESIUM OXIDE
     Indication: Constipation prophylaxis
     Dosage: BEGINNING OF DOSAGE DAY: INVESTIGATIONAL AGENT BEFORE ADMINISTRATION
     Route: 048
  8. LOXOPROFEN SODIUM DIHYDRATE [Concomitant]
     Active Substance: LOXOPROFEN SODIUM DIHYDRATE
     Indication: Cancer pain
     Dosage: BEGINNING OF DOSAGE DAY: INVESTIGATIONAL AGENT BEFORE ADMINISTRATION
     Route: 048
  9. OXYCODONE HYDROCHLORIDE [Concomitant]
     Active Substance: OXYCODONE HYDROCHLORIDE
     Indication: Cancer pain
     Dosage: UNCERTAIN DOSAGE AND SINGLE USE AND BEGINNING OF DOSAGE DAY: INVESTIGATIONAL ?AGENT BEFORE ADMINISTR
     Route: 048

REACTIONS (2)
  - Pyrexia [Recovered/Resolved]
  - Death [Fatal]

NARRATIVE: CASE EVENT DATE: 20191120
